FAERS Safety Report 6809791-3 (Version None)
Quarter: 2010Q2

REPORT INFORMATION
  Report Type: 
  Country: None (occurrence: None)
  Receive Date: 20100630
  Receipt Date: 20100621
  Transmission Date: 20101027
  Serious: Yes (Other)
  Sender: FDA-Public Use
  Company Number: US-BAYER-201020153NA

PATIENT
  Age: 55 Year
  Sex: Female
  Weight: 73 kg

DRUGS (2)
  1. AVELOX [Suspect]
     Indication: SINUSITIS
     Dosage: TOTAL DAILY DOSE: 400 MG  UNIT DOSE: 400 MG
     Route: 048
     Dates: start: 20100319, end: 20100328
  2. SYNTHROID [Concomitant]
     Indication: HYPOTHYROIDISM
     Dosage: TOTAL DAILY DOSE: 88 ?G

REACTIONS (16)
  - CHILLS [None]
  - DIARRHOEA [None]
  - FUNGAL INFECTION [None]
  - MOUTH ULCERATION [None]
  - NAIL GROWTH ABNORMAL [None]
  - OEDEMA PERIPHERAL [None]
  - ONYCHOLYSIS [None]
  - OROPHARYNGEAL PAIN [None]
  - PARAESTHESIA [None]
  - PETECHIAE [None]
  - PHARYNGEAL ULCERATION [None]
  - RASH [None]
  - SENSATION OF PRESSURE [None]
  - SKIN DISORDER [None]
  - THROAT TIGHTNESS [None]
  - VISION BLURRED [None]
